FAERS Safety Report 8614983-7 (Version None)
Quarter: 2012Q3

REPORT INFORMATION
  Report Type: 
  Country: None (occurrence: None)
  Receive Date: 20120814
  Receipt Date: 20120814
  Transmission Date: 20120928
  Serious: Yes (Hospitalization)
  Sender: FDA-Public Use
  Company Number: None

PATIENT
  Age: 63 Year
  Sex: Male
  Weight: 128.8 kg

DRUGS (2)
  1. ASPIRIN [Suspect]
     Indication: GASTROINTESTINAL HAEMORRHAGE
     Dosage: 81 MG EVERY DAY PO
     Route: 048
     Dates: start: 20050101
  2. WARFARIN SODIUM [Suspect]
     Indication: ACUTE MYOCARDIAL INFARCTION
     Dosage: 15 MG EVERY DAY PO
     Route: 048
     Dates: start: 20091214, end: 20120514

REACTIONS (3)
  - CHEST PAIN [None]
  - ANAEMIA [None]
  - GASTRIC HAEMORRHAGE [None]
